FAERS Safety Report 7508531-2 (Version None)
Quarter: 2011Q2

REPORT INFORMATION
  Report Type: 
  Country: None (occurrence: None)
  Receive Date: 20110527
  Receipt Date: 20110523
  Transmission Date: 20111010
  Serious: Yes (Death, Life-Threatening, Hospitalization)
  Sender: FDA-Public Use
  Company Number: US-ELI_LILLY_AND_COMPANY-US201105006855

PATIENT
  Sex: Male

DRUGS (2)
  1. HUMALOG [Suspect]
     Indication: DIABETES MELLITUS
     Dosage: UNK, PRN
     Dates: start: 20110301
  2. GLUCOPHAGE [Concomitant]

REACTIONS (7)
  - LYMPHOMA [None]
  - MULTI-ORGAN FAILURE [None]
  - BLOOD PRESSURE ABNORMAL [None]
  - LUNG INFECTION [None]
  - INFECTION [None]
  - RENAL FAILURE [None]
  - HEPATIC FAILURE [None]
